FAERS Safety Report 11518226 (Version 1)
Quarter: 2015Q3

REPORT INFORMATION
  Report Type: Spontaneous
  Country: US (occurrence: None)
  Receive Date: 20150917
  Receipt Date: 20150917
  Transmission Date: 20151125
  Serious: Yes (Other)
  Sender: FDA-Public Use
  Company Number: US-MDT-ADR-2015-01799

PATIENT
  Age: 42 Year
  Sex: Female

DRUGS (2)
  1. BACLOFEN INTRATHECAL (2000 MCG/ML) [Suspect]
     Active Substance: BACLOFEN
     Dosage: UNK
  2. UNKNOWN ORAL PILLS [Suspect]
     Active Substance: UNSPECIFIED INGREDIENT

REACTIONS (6)
  - Muscle tightness [None]
  - Urinary incontinence [None]
  - Urinary retention [None]
  - Bladder disorder [None]
  - Muscle spasticity [None]
  - Cystitis [None]
